FAERS Safety Report 7977171-3 (Version None)
Quarter: 2011Q4

REPORT INFORMATION
  Report Type: 
  Country: None (occurrence: None)
  Receive Date: 20111213
  Receipt Date: 20111114
  Transmission Date: 20120403
  Serious: No
  Sender: FDA-Public Use
  Company Number: US-AMGEN-USASP2011059717

PATIENT
  Age: 55 Year
  Sex: Female

DRUGS (2)
  1. ENBREL [Suspect]
     Indication: RHEUMATOID ARTHRITIS
     Dosage: 50 MG, QWK
     Dates: start: 20100331, end: 20111001
  2. TREXALL [Concomitant]
     Dosage: UNK
     Dates: start: 20100301

REACTIONS (3)
  - RHEUMATOID ARTHRITIS [None]
  - GASTROENTERITIS VIRAL [None]
  - URINARY TRACT INFECTION [None]
